FAERS Safety Report 8200126-0 (Version None)
Quarter: 2012Q1

REPORT INFORMATION
  Report Type: 
  Country: None (occurrence: None)
  Receive Date: 20120306
  Receipt Date: 20120223
  Transmission Date: 20120608
  Serious: Yes (Hospitalization)
  Sender: FDA-Public Use
  Company Number: 2011SP000252

PATIENT
  Age: 33 Year
  Sex: Male
  Weight: 89.5 kg

DRUGS (3)
  1. DECADRON [Concomitant]
  2. SODIUM CHLORIDE [Concomitant]
  3. TEMOZOLOMIDE [Suspect]
     Indication: MALIGNANT OLIGODENDROGLIOMA
     Dosage: 1200 MG;PO
     Route: 048
     Dates: start: 20100927, end: 20101001

REACTIONS (4)
  - PLATELET COUNT DECREASED [None]
  - CYSTITIS HAEMORRHAGIC [None]
  - WEIGHT DECREASED [None]
  - DEHYDRATION [None]
